FAERS Safety Report 5563928-5 (Version None)
Quarter: 2007Q4

REPORT INFORMATION
  Report Type: 
  Country: None (occurrence: None)
  Receive Date: 20071217
  Receipt Date: 20071008
  Transmission Date: 20080405
  Serious: No
  Sender: FDA-Public Use
  Company Number: US-ASTRAZENECA-2007UW23387

PATIENT
  Age: 72 Year
  Sex: Female
  Weight: 49.9 kg

DRUGS (4)
  1. CRESTOR [Suspect]
     Route: 048
     Dates: start: 20071003
  2. METFORMIN HCL [Concomitant]
  3. FOSAMAX [Concomitant]
  4. M.V.I. [Concomitant]

REACTIONS (2)
  - FATIGUE [None]
  - SOMNOLENCE [None]
